FAERS Safety Report 5556105-5 (Version None)
Quarter: 2007Q4

REPORT INFORMATION
  Report Type: 
  Country: None (occurrence: None)
  Receive Date: 20071213
  Receipt Date: 20071203
  Transmission Date: 20080405
  Serious: Yes (Other)
  Sender: FDA-Public Use
  Company Number: PHHY2007KR00733

PATIENT
  Age: 75 Year
  Sex: Female

DRUGS (2)
  1. VALSARTAN [Suspect]
     Indication: HYPERTENSION
     Dosage: 80 MG, UNK
     Route: 048
     Dates: start: 20040517, end: 20041025
  2. TENORMIN [Concomitant]
     Dosage: 25 MG, UNK

REACTIONS (3)
  - BLOOD POTASSIUM INCREASED [None]
  - BRADYCARDIA [None]
  - LEFT VENTRICULAR FAILURE [None]
